FAERS Safety Report 8759490 (Version 1)
Quarter: 2012Q4

REPORT INFORMATION
  Report Type: 
  Country: SE (occurrence: SE)
  Receive Date: 20120829
  Receipt Date: 20120829
  Transmission Date: 20130627
  Serious: Yes (Life-Threatening, Other)
  Sender: FDA-Public Use
  Company Number: SE-MSD-1206USA05006

PATIENT

DRUGS (3)
  1. ZOCOR [Suspect]
     Route: 048
  2. AMLODIPINE [Suspect]
  3. VASOTEC [Suspect]
     Indication: HYPERTENSION
     Dosage: 10 mg, qd
     Route: 048

REACTIONS (3)
  - Pharyngeal oedema [Not Recovered/Not Resolved]
  - Angioedema [Not Recovered/Not Resolved]
  - Pneumonia [Unknown]
